FAERS Safety Report 8890139 (Version 2)
Quarter: 2012Q4

REPORT INFORMATION
  Report Type: Report from Study
  Country: US (occurrence: US)
  Receive Date: 20121107
  Receipt Date: 20121109
  Transmission Date: 20130627
  Serious: Yes (Hospitalization)
  Sender: FDA-Public Use
  Company Number: US-PFIZER INC-2012273442

PATIENT
  Age: 51 Year
  Sex: Female

DRUGS (3)
  1. PREVACID [Suspect]
     Dosage: 30 mg, 1x/day
     Route: 048
  2. LEVOTHYROXINE SODIUM [Suspect]
     Dosage: UNK
     Route: 065
     Dates: start: 2005
  3. VASOTEC [Concomitant]
     Dosage: UNK

REACTIONS (3)
  - Dysstasia [Unknown]
  - Rash [Unknown]
  - Vomiting [Unknown]
